FAERS Safety Report 13258060 (Version 5)
Quarter: 2017Q3

REPORT INFORMATION
  Report Type: Spontaneous
  Country: KR (occurrence: KR)
  Receive Date: 20170221
  Receipt Date: 20170725
  Transmission Date: 20171127
  Serious: Yes (Hospitalization, Other)
  Sender: FDA-Public Use
  Company Number: KR-009507513-1702KOR008399

PATIENT
  Age: 83 Year
  Sex: Female
  Weight: 54.4 kg

DRUGS (41)
  1. EMEND (FOSAPREPITANT DIMEGLUMINE) [Suspect]
     Active Substance: FOSAPREPITANT DIMEGLUMINE
     Dosage: 150 MG, ONCE
     Route: 042
     Dates: start: 20160818, end: 20160818
  2. SOLONDO [Concomitant]
     Active Substance: PREDNISOLONE
     Dosage: 100 MG, ONCE DAILY
     Route: 048
     Dates: start: 20160818, end: 20160821
  3. ZYLORIC [Concomitant]
     Active Substance: ALLOPURINOL
     Dosage: 100 MG, ONCE
     Route: 048
     Dates: start: 20160709, end: 20160709
  4. BESZYME [Concomitant]
     Indication: PROPHYLAXIS
     Dosage: 2 TABLETS, THREE TIMES A DAY
     Route: 048
     Dates: start: 20160715, end: 20160817
  5. NEULASTA [Concomitant]
     Active Substance: PEGFILGRASTIM
     Dosage: 6 MG, ONCE, FORMULATION: PREFILLED SYRINGE
     Route: 058
     Dates: start: 20160818, end: 20160818
  6. PARAMACET [Concomitant]
     Active Substance: ACETAMINOPHEN\TRAMADOL
     Indication: PAIN PROPHYLAXIS
     Dosage: 2 TABLETS, ONCE DAILY
     Route: 048
     Dates: start: 20160715
  7. SEPTRIN [Concomitant]
     Active Substance: SULFAMETHOXAZOLE\TRIMETHOPRIM
     Indication: PAIN PROPHYLAXIS
     Dosage: 1 TABLET, ONCE DAILY
     Route: 048
     Dates: start: 20160709
  8. VINCRISTINE SULFATE. [Concomitant]
     Active Substance: VINCRISTINE SULFATE
     Dosage: 2 MG, ONCE (CYCLE 2)
     Route: 042
     Dates: start: 20160728, end: 20160728
  9. SOLONDO [Concomitant]
     Active Substance: PREDNISOLONE
     Indication: PROPHYLAXIS OF NAUSEA AND VOMITING
     Dosage: 100 MG, ONCE DAILY
     Route: 048
     Dates: start: 20160706, end: 20160709
  10. ZYLORIC [Concomitant]
     Active Substance: ALLOPURINOL
     Indication: PROPHYLAXIS
     Dosage: 300 MG, QD
     Route: 048
     Dates: start: 20160706, end: 20160708
  11. CINALONG [Concomitant]
     Indication: HYPERTENSION
     Dosage: 10 MG, ONCE DAILY
     Route: 048
  12. NEULASTA [Concomitant]
     Active Substance: PEGFILGRASTIM
     Dosage: 6 MG, ONCE, , FORMULATION: PREFILLED SYRINGE
     Route: 058
     Dates: start: 20160728, end: 20160728
  13. ADRIAMYCIN [Concomitant]
     Active Substance: DOXORUBICIN HYDROCHLORIDE
     Dosage: 55.5 MG, ONCE (CYCLE 3)
     Route: 042
     Dates: start: 20160818, end: 20160818
  14. CARDIOXANE [Concomitant]
     Active Substance: DEXRAZOXANE HYDROCHLORIDE
     Dosage: 500 MG, ONCE
     Route: 042
     Dates: start: 20160818, end: 20160818
  15. NEURONTIN [Concomitant]
     Active Substance: GABAPENTIN
     Indication: PROPHYLAXIS
     Dosage: 100 MG, THREE TIMES A DAY
     Route: 048
     Dates: start: 20160709
  16. EMEND (FOSAPREPITANT DIMEGLUMINE) [Suspect]
     Active Substance: FOSAPREPITANT DIMEGLUMINE
     Indication: PROPHYLAXIS OF NAUSEA AND VOMITING
     Dosage: 150 MG, ONCE
     Route: 042
     Dates: start: 20160706, end: 20160706
  17. ENDOXAN [Concomitant]
     Active Substance: CYCLOPHOSPHAMIDE
     Indication: CHEMOTHERAPY
     Dosage: 838.13 MG, ONCE (CYCLE 1)
     Route: 042
     Dates: start: 20160706, end: 20160706
  18. VINCRISTINE SULFATE. [Concomitant]
     Active Substance: VINCRISTINE SULFATE
     Dosage: 2 MG, ONCE (CYCLE 3)
     Route: 042
     Dates: start: 20160818, end: 20160818
  19. ALOXI [Concomitant]
     Active Substance: PALONOSETRON HYDROCHLORIDE
     Indication: PROPHYLAXIS OF NAUSEA AND VOMITING
     Dosage: 0.25 MG, ONCE
     Route: 042
     Dates: start: 20160728, end: 20160728
  20. ALOXI [Concomitant]
     Active Substance: PALONOSETRON HYDROCHLORIDE
     Dosage: 0.25 MG, ONCE
     Route: 042
     Dates: start: 20160818, end: 20160818
  21. MAGMIL [Concomitant]
     Active Substance: MAGNESIUM HYDROXIDE
     Indication: CONSTIPATION PROPHYLAXIS
     Dosage: 500 MG, THREE TIMES A DAY
     Route: 048
     Dates: start: 20160707
  22. EMEND (FOSAPREPITANT DIMEGLUMINE) [Suspect]
     Active Substance: FOSAPREPITANT DIMEGLUMINE
     Dosage: 150 MG, ONCE
     Route: 042
     Dates: start: 20160728, end: 20160728
  23. ENDOXAN [Concomitant]
     Active Substance: CYCLOPHOSPHAMIDE
     Dosage: 843.75 MG, ONCE (CYCLE 2)
     Route: 042
     Dates: start: 20160728, end: 20160728
  24. VINCRISTINE SULFATE. [Concomitant]
     Active Substance: VINCRISTINE SULFATE
     Indication: CHEMOTHERAPY
     Dosage: 2 MG, ONCE (CYCLE 1)
     Route: 042
     Dates: start: 20160706, end: 20160706
  25. ENCOVER [Concomitant]
     Indication: DECREASED APPETITE
     Dosage: 200 ML, THREE TIMES A DAY
     Route: 048
     Dates: start: 20160715
  26. CRESTOR [Concomitant]
     Active Substance: ROSUVASTATIN CALCIUM
     Indication: HYPERLIPIDAEMIA
     Dosage: 10 MG, ONCE DAILY
     Route: 048
  27. ADRIAMYCIN [Concomitant]
     Active Substance: DOXORUBICIN HYDROCHLORIDE
     Indication: CHEMOTHERAPY
     Dosage: 55.875 MG, ONCE (CYCLE 1)
     Route: 042
     Dates: start: 20160706, end: 20160706
  28. ENDOXAN [Concomitant]
     Active Substance: CYCLOPHOSPHAMIDE
     Dosage: 832.5 MG, ONCE (CYCLE 3)
     Route: 042
     Dates: start: 20160818, end: 20160818
  29. SOLONDO [Concomitant]
     Active Substance: PREDNISOLONE
     Dosage: 100 MG, ONCE DAILY
     Route: 048
     Dates: start: 20160728, end: 20160731
  30. ZYLORIC [Concomitant]
     Active Substance: ALLOPURINOL
     Dosage: 500 MG, ONCE
     Route: 048
     Dates: start: 20160728, end: 20160728
  31. ZYLORIC [Concomitant]
     Active Substance: ALLOPURINOL
     Dosage: 200 MG, QD
     Route: 048
     Dates: start: 20160819, end: 20160823
  32. ZYLORIC [Concomitant]
     Active Substance: ALLOPURINOL
     Dosage: 500 MG, ONCE
     Route: 048
     Dates: start: 20160818, end: 20160818
  33. SYNTHROID [Concomitant]
     Active Substance: LEVOTHYROXINE SODIUM
     Indication: HYPOTHYROIDISM
     Dosage: 0.1 MG, ONCE DAILY
     Route: 048
  34. CALCIO (CALCITRIOL) [Concomitant]
     Indication: ATRIAL FIBRILLATION
     Dosage: 0.25 MICROGRAM, ONCE DAILY
     Route: 048
  35. ADRIAMYCIN [Concomitant]
     Active Substance: DOXORUBICIN HYDROCHLORIDE
     Dosage: 56.25 MG, ONCE (CYCLE 2)
     Route: 042
     Dates: start: 20160728, end: 20160728
  36. ZYLORIC [Concomitant]
     Active Substance: ALLOPURINOL
     Dosage: 200 MG, QD
     Route: 048
     Dates: start: 20160729, end: 20160802
  37. CARDIOXANE [Concomitant]
     Active Substance: DEXRAZOXANE HYDROCHLORIDE
     Indication: PREMEDICATION
     Dosage: 500 MG, ONCE
     Route: 042
     Dates: start: 20160728, end: 20160728
  38. CICIBON [Concomitant]
     Indication: MINERAL SUPPLEMENTATION
     Dosage: 2 TABLETS, TWICE A DAY
     Route: 048
  39. CELEBREX [Concomitant]
     Active Substance: CELECOXIB
     Indication: PAIN PROPHYLAXIS
     Dosage: 200 MG, ONCE DAILY
     Route: 048
     Dates: start: 20160715
  40. DEXILANT [Concomitant]
     Active Substance: DEXLANSOPRAZOLE
     Indication: PROPHYLAXIS
     Dosage: 60 MG, ONCE DAILY
     Route: 048
     Dates: start: 20160709
  41. NEULASTA [Concomitant]
     Active Substance: PEGFILGRASTIM
     Indication: PROPHYLAXIS
     Dosage: 6 MG, ONCE, FORMULATION: PREFILLED SYRINGE
     Route: 058
     Dates: start: 20160706, end: 20160706

REACTIONS (2)
  - Pancytopenia [Recovered/Resolved]
  - Cystitis [Recovered/Resolved]

NARRATIVE: CASE EVENT DATE: 20160824
